FAERS Safety Report 10572947 (Version 2)
Quarter: 2014Q4

REPORT INFORMATION
  Report Type: Spontaneous
  Country: DE (occurrence: DE)
  Receive Date: 20141110
  Receipt Date: 20141202
  Transmission Date: 20150529
  Serious: Yes (Other)
  Sender: FDA-Public Use
  Company Number: DE-AMGEN-DEUSP2014086303

PATIENT
  Age: 53 Year
  Sex: Female
  Weight: 67 kg

DRUGS (5)
  1. LORAZEPAM DURA [Concomitant]
     Indication: ANXIETY
     Dosage: 1 MG, QD
     Route: 048
  2. XGEVA [Suspect]
     Active Substance: DENOSUMAB
     Indication: METASTASES TO BONE
     Dosage: 120 MG, UNK
     Route: 058
     Dates: start: 20141024
  3. BONDRONAT                          /01304701/ [Concomitant]
     Active Substance: IBANDRONIC ACID
     Indication: METASTASES TO BONE
     Dosage: 6 MG, Q4WK
     Dates: start: 201312
  4. MIRTAZEPINE TEVA [Concomitant]
     Active Substance: MIRTAZAPINE
     Indication: DEPRESSION
     Dosage: 30 MG, QD
     Route: 048
  5. ANASTROZOL HEUMANN [Concomitant]
     Indication: BREAST CANCER
     Dosage: 1 MG, QD
     Route: 048
     Dates: start: 201311

REACTIONS (4)
  - Depression [Recovering/Resolving]
  - Panic attack [Recovering/Resolving]
  - Suicidal ideation [Recovering/Resolving]
  - Fear [Recovering/Resolving]

NARRATIVE: CASE EVENT DATE: 20141024
